FAERS Safety Report 6524599-4 (Version None)
Quarter: 2010Q1

REPORT INFORMATION
  Report Type: 
  Country: None (occurrence: None)
  Receive Date: 20100104
  Receipt Date: 20091222
  Transmission Date: 20100710
  Serious: Yes (Other)
  Sender: FDA-Public Use
  Company Number: PHHY2009MT57595

PATIENT
  Sex: Female

DRUGS (1)
  1. ACLASTA [Suspect]
     Indication: OSTEOPENIA
     Dosage: ONE 5MG/100 ML INFUSION
     Route: 042
     Dates: start: 20091201

REACTIONS (2)
  - DIZZINESS [None]
  - HYPOTENSION [None]
